FAERS Safety Report 6449252-7 (Version None)
Quarter: 2009Q4

REPORT INFORMATION
  Report Type: 
  Country: None (occurrence: None)
  Receive Date: 20091120
  Receipt Date: 20091110
  Transmission Date: 20100525
  Serious: Yes (Other)
  Sender: FDA-Public Use
  Company Number: GB-PFIZER INC-2009295566

PATIENT
  Age: 69 Year
  Sex: Female

DRUGS (5)
  1. METHYLPREDNISOLONE AND METHYLPREDNISOLONE ACETATE AND METHYLPREDNISOLO [Suspect]
     Indication: LICHEN SCLEROSUS
     Dosage: 5 G, UNK
     Dates: start: 19980101
  2. PREDNISOLONE AND PREDNISOLONE STEAGLATE [Suspect]
     Indication: LICHEN SCLEROSUS
     Dosage: 10 MG, 1X/DAY
     Dates: start: 19930101, end: 19990101
  3. METHOXSALEN [Suspect]
     Indication: LICHEN SCLEROSUS
     Dosage: 7.5 J/CM2
     Route: 061
     Dates: start: 19960101
  4. CYCLOSPORINE [Suspect]
     Indication: LICHEN SCLEROSUS
     Dosage: 175 MG, 1X/DAY
     Dates: start: 19980101
  5. MYCOPHENOLATE MOFETIL [Suspect]
     Indication: LICHEN SCLEROSUS
     Dosage: 2 G, 1X/DAY
     Dates: start: 20000101, end: 20010101

REACTIONS (2)
  - SQUAMOUS CELL CARCINOMA [None]
  - THERAPEUTIC RESPONSE DECREASED [None]
